FAERS Safety Report 4347810-7 (Version None)
Quarter: 2004Q2

REPORT INFORMATION
  Report Type: 
  Country: None (occurrence: None)
  Receive Date: 20040422
  Receipt Date: 20040406
  Transmission Date: 20050107
  Serious: Yes (Death, Hospitalization, Other)
  Sender: FDA-Public Use
  Company Number: 183432

PATIENT
  Age: 45 Year
  Sex: Male

DRUGS (22)
  1. AVONEX [Suspect]
     Indication: MULTIPLE SCLEROSIS
     Dosage: 30 MCG QW IM
     Route: 030
     Dates: start: 19990801, end: 20030801
  2. AVONEX [Suspect]
     Indication: MULTIPLE SCLEROSIS
     Dosage: 30 MCG QW IM
     Route: 030
     Dates: start: 20030905, end: 20031017
  3. TYLENOL (CAPLET) [Concomitant]
  4. BACLOFEN [Concomitant]
  5. ASPIRIN [Concomitant]
  6. TEGRETOL [Concomitant]
  7. NEURONTIN [Concomitant]
  8. APPLE CIDER AND VINEGAR TABLETS [Concomitant]
  9. SPIRONOLACTONE [Concomitant]
  10. CRANBERRY TABLETS [Concomitant]
  11. ZOLOFT [Concomitant]
  12. MULTI-VITAMINS [Concomitant]
  13. INDERAL LA [Concomitant]
  14. ACETAMINOPHEN [Concomitant]
  15. CEPACOL [Concomitant]
  16. ROBITUSSIN [Concomitant]
  17. MILK OF MAGNESIA TAB [Concomitant]
  18. OXYBUTYNIN HYDROCHLORIDE [Concomitant]
  19. PHAZYME [Concomitant]
  20. SELSUN BLUE [Concomitant]
  21. EUCERIN CREME [Concomitant]
  22. LOTRISONE [Concomitant]

REACTIONS (20)
  - BEDRIDDEN [None]
  - COMA [None]
  - CONSTIPATION [None]
  - ENTEROCOCCAL INFECTION [None]
  - FEEDING DISORDER [None]
  - HAEMATOCRIT DECREASED [None]
  - HAEMOGLOBIN DECREASED [None]
  - HYPERTENSION [None]
  - HYPONATRAEMIA [None]
  - HYPOTENSION [None]
  - KIDNEY INFECTION [None]
  - LUNG DISORDER [None]
  - NEUROGENIC BLADDER [None]
  - PATHOGEN RESISTANCE [None]
  - PROTEUS INFECTION [None]
  - RED BLOOD CELL COUNT DECREASED [None]
  - RENAL FAILURE [None]
  - STAPHYLOCOCCAL SEPSIS [None]
  - URINE BILIRUBIN INCREASED [None]
  - UROSEPSIS [None]
